FAERS Safety Report 15202005 (Version 2)
Quarter: 2018Q3

REPORT INFORMATION
  Report Type: Report from Study
  Country: CN (occurrence: CN)
  Receive Date: 20180726
  Receipt Date: 20180816
  Transmission Date: 20181010
  Serious: Yes (Hospitalization)
  Sender: FDA-Public Use
  Company Number: CN-ASTRAZENECA-2018SE93708

PATIENT
  Age: 19939 Day
  Sex: Male

DRUGS (14)
  1. PARACETAMOL AND DIHYDROCODEINE TARTRATE [Concomitant]
     Indication: COUGH
     Dosage: 2.0DF AS REQUIRED
     Route: 048
     Dates: start: 20180626
  2. ALLOPURINOL. [Concomitant]
     Active Substance: ALLOPURINOL
     Indication: AMINO ACID LEVEL INCREASED
     Route: 048
     Dates: start: 20180710, end: 20180713
  3. SODIUM BICARBONATE. [Concomitant]
     Active Substance: SODIUM BICARBONATE
     Indication: AMINO ACID LEVEL INCREASED
     Route: 042
     Dates: start: 20180709, end: 20180712
  4. MEDI4736 [Suspect]
     Active Substance: DURVALUMAB
     Indication: SMALL CELL LUNG CANCER
     Route: 042
     Dates: start: 20180709, end: 20180709
  5. ALLOPURINOL. [Concomitant]
     Active Substance: ALLOPURINOL
     Indication: AMINO ACID LEVEL INCREASED
     Route: 048
     Dates: start: 20180701, end: 20180703
  6. CARBOPLATIN. [Suspect]
     Active Substance: CARBOPLATIN
     Indication: SMALL CELL LUNG CANCER
     Dosage: 5 AUC
     Route: 065
     Dates: start: 20180709, end: 20180709
  7. LACTULOSE. [Concomitant]
     Active Substance: LACTULOSE
     Indication: LAXATIVE SUPPORTIVE CARE
     Route: 048
     Dates: start: 20180712, end: 20180713
  8. TORASEMIDE [Concomitant]
     Active Substance: TORSEMIDE
     Indication: DIURETIC THERAPY
     Route: 042
     Dates: start: 20180709, end: 20180709
  9. GRANULOCYTE COLONY STIMULATING FACTOR [Concomitant]
     Active Substance: GRANULOCYTE COLONY-STIMULATING FACTOR NOS
     Indication: WHITE BLOOD CELL COUNT DECREASED
     Route: 058
     Dates: start: 20180713, end: 20180713
  10. TORASEMIDE [Concomitant]
     Active Substance: TORSEMIDE
     Indication: DIURETIC THERAPY
     Route: 042
     Dates: start: 20180711, end: 20180711
  11. ETOPOSIDE. [Suspect]
     Active Substance: ETOPOSIDE
     Indication: SMALL CELL LUNG CANCER
     Dosage: 80 MG/M2
     Route: 065
     Dates: start: 20180609, end: 20180709
  12. GLYCYRRHIZIN [Concomitant]
     Active Substance: GLYCYRRHIZIN
     Indication: PROPHYLAXIS
     Route: 048
     Dates: start: 20180713
  13. SODIUM BICARBONATE. [Concomitant]
     Active Substance: SODIUM BICARBONATE
     Indication: AMINO ACID LEVEL INCREASED
     Route: 048
     Dates: start: 20180710, end: 20180713
  14. LANSOPRAZOLE. [Concomitant]
     Active Substance: LANSOPRAZOLE
     Indication: PROPHYLAXIS
     Route: 042
     Dates: start: 20180709, end: 20180712

REACTIONS (1)
  - Bone marrow failure [Recovered/Resolved]

NARRATIVE: CASE EVENT DATE: 20180719
